FAERS Safety Report 12125952 (Version 2)
Quarter: 2016Q1

REPORT INFORMATION
  Report Type: Report from Study
  Country: US (occurrence: US)
  Receive Date: 20160229
  Receipt Date: 20160229
  Transmission Date: 20160526
  Serious: No
  Sender: FDA-Public Use
  Company Number: US-ABBVIE-15P-163-1449641-00

PATIENT
  Sex: Male

DRUGS (2)
  1. ANDROGEL [Suspect]
     Active Substance: TESTOSTERONE
     Indication: ANDROGEN DEFICIENCY
     Route: 061
     Dates: start: 201505
  2. ARIMIDEX [Concomitant]
     Active Substance: ANASTROZOLE
     Indication: AROMATASE INHIBITION THERAPY
     Route: 065

REACTIONS (1)
  - Incorrect product storage [Unknown]
